FAERS Safety Report 13057928 (Version 1)
Quarter: 2016Q4

REPORT INFORMATION
  Report Type: Spontaneous
  Country: CN (occurrence: CN)
  Receive Date: 20161223
  Receipt Date: 20161223
  Transmission Date: 20170207
  Serious: Yes (Other)
  Sender: FDA-Public Use
  Company Number: CN-ROCHE-1869434

PATIENT
  Age: 36 Year
  Sex: Female
  Weight: 42 kg

DRUGS (1)
  1. ROCEPHIN [Suspect]
     Active Substance: CEFTRIAXONE SODIUM
     Indication: FEBRILE INFECTION
     Route: 041
     Dates: start: 20160725, end: 20160725

REACTIONS (3)
  - Rash [Recovering/Resolving]
  - Dizziness [Recovering/Resolving]
  - Monoplegia [Recovering/Resolving]

NARRATIVE: CASE EVENT DATE: 20160725
